FAERS Safety Report 11747587 (Version 3)
Quarter: 2016Q1

REPORT INFORMATION
  Report Type: Spontaneous
  Country: CA (occurrence: CA)
  Receive Date: 20151117
  Receipt Date: 20160307
  Transmission Date: 20160525
  Serious: Yes (Hospitalization)
  Sender: FDA-Public Use
  Company Number: CA-TEVA-610075USA

PATIENT
  Age: 64 Year
  Sex: Male

DRUGS (1)
  1. DILTIAZEM [Suspect]
     Active Substance: DILTIAZEM
     Dosage: SUSTAINED-RELEASE DILTIAZEM
     Route: 048

REACTIONS (11)
  - Lactic acidosis [Recovering/Resolving]
  - Anuria [Recovering/Resolving]
  - Tetany [Recovering/Resolving]
  - Generalised tonic-clonic seizure [Recovering/Resolving]
  - Toxicity to various agents [Recovering/Resolving]
  - Ischaemic hepatitis [Recovering/Resolving]
  - Hypotension [Recovering/Resolving]
  - Cardiac arrest [Recovering/Resolving]
  - Intentional overdose [Recovering/Resolving]
  - Shock [Recovering/Resolving]
  - Bradycardia [Recovering/Resolving]
